FAERS Safety Report 10454538 (Version 1)
Quarter: 2014Q3

REPORT INFORMATION
  Report Type: Spontaneous
  Country: US (occurrence: US)
  Receive Date: 20140915
  Receipt Date: 20140915
  Transmission Date: 20150326
  Serious: No
  Sender: FDA-Public Use
  Company Number: US-BRISTOL-MYERS SQUIBB COMPANY-20603122

PATIENT
  Age: 61 Year
  Sex: Male

DRUGS (17)
  1. ALLOPURINOL. [Concomitant]
     Active Substance: ALLOPURINOL
  2. OMEPRAZOLE. [Concomitant]
     Active Substance: OMEPRAZOLE
  3. LIPITOR [Concomitant]
     Active Substance: ATORVASTATIN CALCIUM
  4. BYDUREON [Suspect]
     Active Substance: EXENATIDE
     Indication: TYPE 2 DIABETES MELLITUS
     Route: 058
     Dates: start: 20140327, end: 20140403
  5. METOPROLOL [Concomitant]
     Active Substance: METOPROLOL
  6. CLARITIN [Concomitant]
     Active Substance: LORATADINE
  7. GLIPIZIDE. [Suspect]
     Active Substance: GLIPIZIDE
  8. ASPIRIN. [Concomitant]
     Active Substance: ASPIRIN
  9. ZAFIRLUKAST. [Concomitant]
     Active Substance: ZAFIRLUKAST
  10. OMEGA 3 FATTY ACID [Concomitant]
     Active Substance: OMEGA-3 FATTY ACIDS
  11. ALBUTEROL SULFATE. [Concomitant]
     Active Substance: ALBUTEROL SULFATE
  12. METFORMIN HCL [Suspect]
     Active Substance: METFORMIN HYDROCHLORIDE
  13. MIRAPEX [Concomitant]
     Active Substance: PRAMIPEXOLE DIHYDROCHLORIDE
  14. ONGLYZA [Suspect]
     Active Substance: SAXAGLIPTIN HYDROCHLORIDE
  15. LANTUS [Suspect]
     Active Substance: INSULIN GLARGINE
  16. FUROSEMIDE. [Concomitant]
     Active Substance: FUROSEMIDE
  17. IPRATROPIUM [Concomitant]
     Active Substance: IPRATROPIUM

REACTIONS (3)
  - Glycosylated haemoglobin increased [Unknown]
  - Blood glucose fluctuation [Unknown]
  - Depression [Unknown]
